FAERS Safety Report 13737654 (Version 1)
Quarter: 2017Q3

REPORT INFORMATION
  Report Type: Report from Study
  Country: US (occurrence: US)
  Receive Date: 20170710
  Receipt Date: 20170710
  Transmission Date: 20171127
  Serious: No
  Sender: FDA-Public Use
  Company Number: US-SAOL THERAPEUTICS-2016SAO00232

PATIENT
  Sex: Female

DRUGS (18)
  1. COMPOUNDED BACLOFEN [Suspect]
     Active Substance: BACLOFEN
     Indication: PAIN
     Dosage: 360.41 ?G, \DAY
     Route: 037
     Dates: start: 20140731, end: 20140805
  2. DILAUDID [Suspect]
     Active Substance: HYDROMORPHONE HYDROCHLORIDE
     Dosage: 0.15017 MG, \DAY
     Dates: start: 20140715, end: 20140731
  3. KETAMINE [Suspect]
     Active Substance: KETAMINE
     Dosage: 360.41 ?G, \DAY
     Dates: start: 20140731, end: 20140805
  4. DILAUDID [Suspect]
     Active Substance: HYDROMORPHONE HYDROCHLORIDE
     Dosage: 0.10001 MG, \DAY
     Dates: start: 20140710, end: 20140715
  5. BUPIVACAINE. [Suspect]
     Active Substance: BUPIVACAINE
     Dosage: 4.000 MG, \DAY
     Route: 037
     Dates: start: 20140710, end: 20140715
  6. COMPOUNDED BACLOFEN [Suspect]
     Active Substance: BACLOFEN
     Dosage: 420.26 ?G, \DAY
     Route: 037
     Dates: start: 20140805
  7. DILAUDID [Suspect]
     Active Substance: HYDROMORPHONE HYDROCHLORIDE
     Dosage: 0.30034 G, \DAY
     Dates: start: 20140731, end: 20140805
  8. BUPIVACAINE. [Suspect]
     Active Substance: BUPIVACAINE
     Dosage: 18.021 MG, \DAY
     Route: 037
     Dates: start: 20140731, end: 20140805
  9. KETAMINE [Suspect]
     Active Substance: KETAMINE
     Dosage: 420.26 ?G, \DAY
     Dates: start: 20140805
  10. COMPOUNDED BACLOFEN [Suspect]
     Active Substance: BACLOFEN
     Dosage: 90.10 ?G, \DAY
     Route: 037
     Dates: start: 20140715, end: 20140731
  11. KETAMINE [Suspect]
     Active Substance: KETAMINE
     Dosage: 150.17 ?G, \DAY
     Dates: start: 20140715, end: 20140731
  12. CLONIDINE. [Suspect]
     Active Substance: CLONIDINE
     Dosage: 120.14 ?G, \DAY
     Dates: start: 20140731, end: 20140805
  13. BUPIVACAINE. [Suspect]
     Active Substance: BUPIVACAINE
     Dosage: 6.007 MG, \DAY
     Dates: start: 20140715, end: 20140731
  14. COMPOUNDED BACLOFEN [Suspect]
     Active Substance: BACLOFEN
     Indication: PAIN
     Dosage: 60.01 ?G, \DAY
     Route: 037
     Dates: start: 20140710, end: 20140715
  15. DILAUDID [Suspect]
     Active Substance: HYDROMORPHONE HYDROCHLORIDE
     Dosage: 0.35022 MG, \DAY
     Dates: start: 20140805
  16. BUPIVACAINE. [Suspect]
     Active Substance: BUPIVACAINE
     Dosage: 21.013 MG, \DAY
     Dates: start: 20140805
  17. KETAMINE [Suspect]
     Active Substance: KETAMINE
     Dosage: 100.01 ?G, \DAY
     Dates: start: 20140710, end: 20140715
  18. CLONIDINE. [Suspect]
     Active Substance: CLONIDINE
     Dosage: 140.09 ?G, \DAY
     Dates: start: 20140805

REACTIONS (9)
  - Nausea [Unknown]
  - Asthenia [Unknown]
  - Anal incontinence [Unknown]
  - Hypoaesthesia [Unknown]
  - Pain [Unknown]
  - Frequent bowel movements [Unknown]
  - Oedema peripheral [Unknown]
  - Somnolence [Unknown]
  - Pain in extremity [Unknown]
